FAERS Safety Report 18922589 (Version 1)
Quarter: 2021Q1

REPORT INFORMATION
  Report Type: Spontaneous
  Country: US (occurrence: US)
  Receive Date: 20210219
  Receipt Date: 20210219
  Transmission Date: 20210420
  Serious: No
  Sender: FDA-Public Use
  Company Number: None

PATIENT
  Age: 72 Year
  Sex: Female
  Weight: 48.08 kg

DRUGS (1)
  1. EPCLUSA [Suspect]
     Active Substance: SOFOSBUVIR\VELPATASVIR
     Indication: CHRONIC HEPATITIS C
     Dosage: OTHER DOSE:1 TABLET;?WIT OR WITHOUT FOOD AS DIRECTED.
     Route: 048
     Dates: start: 202101

REACTIONS (2)
  - Haemorrhage [None]
  - Vomiting [None]
